FAERS Safety Report 19968081 (Version 3)
Quarter: 2025Q2

REPORT INFORMATION
  Report Type: Spontaneous
  Country: US (occurrence: US)
  Receive Date: 20211019
  Receipt Date: 20250529
  Transmission Date: 20250716
  Serious: No
  Sender: CIPLA
  Company Number: US-CIPLA LTD.-2021US05133

PATIENT

DRUGS (5)
  1. ALBUTEROL [Suspect]
     Active Substance: ALBUTEROL
     Indication: Chronic obstructive pulmonary disease
  2. ALBUTEROL [Suspect]
     Active Substance: ALBUTEROL
     Dates: start: 202106, end: 2021
  3. ALBUTEROL [Suspect]
     Active Substance: ALBUTEROL
     Dates: start: 202106, end: 2021
  4. ALBUTEROL [Suspect]
     Active Substance: ALBUTEROL
     Dates: start: 202106, end: 2021
  5. TRELEGY ELLIPTA [Concomitant]
     Active Substance: FLUTICASONE FUROATE\UMECLIDINIUM BROMIDE\VILANTEROL TRIFENATATE
     Indication: Product used for unknown indication
     Dosage: UNK, ONE PUFF EVERY DAY
     Route: 065

REACTIONS (2)
  - Device malfunction [Unknown]
  - Drug ineffective [Unknown]

NARRATIVE: CASE EVENT DATE: 20210101
